FAERS Safety Report 20088652 (Version 2)
Quarter: 2021Q4

REPORT INFORMATION
  Report Type: Report from Study
  Country: PH (occurrence: PH)
  Receive Date: 20211119
  Receipt Date: 20211209
  Transmission Date: 20220304
  Serious: No
  Sender: FDA-Public Use
  Company Number: PH-NOVARTISPH-NVSC2021PH263646

PATIENT

DRUGS (6)
  1. SECUKINUMAB [Suspect]
     Active Substance: SECUKINUMAB
     Indication: Ankylosing spondylitis
     Dosage: CODE NOT BROKEN
     Route: 042
  2. INVESTIGATIONAL PRODUCT [Suspect]
     Active Substance: INVESTIGATIONAL PRODUCT
     Indication: Ankylosing spondylitis
     Dosage: CODE NOT BROKEN
     Route: 042
  3. PLACEBO [Suspect]
     Active Substance: UNSPECIFIED INGREDIENT
     Indication: Ankylosing spondylitis
     Dosage: CODE NOT BROKEN
     Route: 042
  4. SECUKINUMAB [Suspect]
     Active Substance: SECUKINUMAB
     Indication: Axial spondyloarthritis
  5. INVESTIGATIONAL PRODUCT [Suspect]
     Active Substance: INVESTIGATIONAL PRODUCT
     Indication: Axial spondyloarthritis
  6. PLACEBO [Suspect]
     Active Substance: UNSPECIFIED INGREDIENT
     Indication: Axial spondyloarthritis

REACTIONS (1)
  - Creatinine renal clearance abnormal [Not Recovered/Not Resolved]

NARRATIVE: CASE EVENT DATE: 20210407
